FAERS Safety Report 7259161-1 (Version None)
Quarter: 2011Q1

REPORT INFORMATION
  Report Type: 
  Country: None (occurrence: None)
  Receive Date: 20110129
  Receipt Date: 20100625
  Transmission Date: 20110831
  Serious: No
  Sender: FDA-Public Use
  Company Number: US-ABBOTT-10P-163-0653575-00

PATIENT
  Age: 27 Year
  Sex: Female

DRUGS (2)
  1. HUMIRA [Suspect]
     Indication: PSORIASIS
     Route: 058
     Dates: start: 20100519
  2. SAMCICLOVIR [Concomitant]
     Indication: ORAL HERPES
     Dosage: 2 TABLETS
     Route: 048

REACTIONS (1)
  - INJECTION SITE NODULE [None]
